FAERS Safety Report 6442048-1 (Version None)
Quarter: 2009Q4

REPORT INFORMATION
  Report Type: 
  Country: None (occurrence: None)
  Receive Date: 20091112
  Receipt Date: 20091102
  Transmission Date: 20100525
  Serious: Yes (Other)
  Sender: FDA-Public Use
  Company Number: ADR47012009

PATIENT
  Age: 85 Year
  Sex: Female

DRUGS (8)
  1. SIMVASTATIN [Suspect]
     Indication: BLOOD CHOLESTEROL INCREASED
     Dosage: 40MG ORAL
     Route: 048
     Dates: start: 20070419, end: 20070422
  2. POMEGRABATE [Concomitant]
  3. ISMN [Concomitant]
  4. LOSARTAN [Concomitant]
  5. METFORMIN HCL [Concomitant]
  6. OVESTIN [Concomitant]
  7. RANITIDINE [Concomitant]
  8. SOLIFENACIN [Concomitant]

REACTIONS (2)
  - FOOD INTERACTION [None]
  - PAIN IN EXTREMITY [None]
